FAERS Safety Report 21208261 (Version 5)
Quarter: 2023Q4

REPORT INFORMATION
  Report Type: Report from Study
  Country: US (occurrence: US)
  Receive Date: 20220812
  Receipt Date: 20231010
  Transmission Date: 20240109
  Serious: Yes (Disabling, Other)
  Sender: FDA-Public Use
  Company Number: US-UCBSA-2022041299

PATIENT
  Sex: Female

DRUGS (3)
  1. CERTOLIZUMAB PEGOL [Suspect]
     Active Substance: CERTOLIZUMAB PEGOL
     Indication: Axial spondyloarthritis
     Dosage: 400 MILLIGRAM, EV 2 WEEKS(QOW)
     Route: 058
     Dates: start: 20220704, end: 2022
  2. CERTOLIZUMAB PEGOL [Suspect]
     Active Substance: CERTOLIZUMAB PEGOL
     Dosage: 400 MILLIGRAM, EV 4 WEEKS
     Route: 058
     Dates: start: 2022
  3. GABAPENTIN [Concomitant]
     Active Substance: GABAPENTIN
     Indication: Product used for unknown indication
     Dosage: UNK

REACTIONS (14)
  - Axial spondyloarthritis [Not Recovered/Not Resolved]
  - Fibromyalgia [Not Recovered/Not Resolved]
  - Injection site pallor [Recovered/Resolved]
  - Depression [Recovering/Resolving]
  - Nausea [Recovered/Resolved]
  - Pelvic floor dysfunction [Not Recovered/Not Resolved]
  - Gastrooesophageal reflux disease [Not Recovered/Not Resolved]
  - Exposure to SARS-CoV-2 [Unknown]
  - Liquid product physical issue [Unknown]
  - Inappropriate schedule of product administration [Unknown]
  - Therapy interrupted [Unknown]
  - Product availability issue [Unknown]
  - Insurance issue [Unknown]
  - Therapeutic response shortened [Unknown]

NARRATIVE: CASE EVENT DATE: 20220101
